FAERS Safety Report 4458525-9 (Version None)
Quarter: 2004Q3

REPORT INFORMATION
  Report Type: 
  Country: None (occurrence: None)
  Receive Date: 20040922
  Receipt Date: 20031118
  Transmission Date: 20050211
  Serious: Yes (Hospitalization)
  Sender: FDA-Public Use
  Company Number: US-SHR-03-010810

PATIENT
  Age: 58 Year
  Sex: Female

DRUGS (13)
  1. BETASERON [Suspect]
     Indication: MULTIPLE SCLEROSIS
     Dosage: 8 MIU, EVERY 2D, SUBCUTANEOUS
     Route: 058
     Dates: start: 20011001
  2. EFFEXOR [Concomitant]
  3. BACLOFEN [Concomitant]
  4. HYDROCHLOROTHIAZIDE [Concomitant]
  5. METOPROLOL TARTRATE [Concomitant]
  6. ALPRAZOLAM [Concomitant]
  7. DETROL [Concomitant]
  8. SENOKOT [Concomitant]
  9. PRAVACHOL [Concomitant]
  10. DICLOFENAC [Concomitant]
  11. ACETYLSALICYLIC ACID SRT [Concomitant]
  12. PREMARIN [Concomitant]
  13. IBUPROFEN [Concomitant]

REACTIONS (1)
  - MULTIPLE SCLEROSIS [None]
